FAERS Safety Report 5928807-X (Version None)
Quarter: 2008Q4

REPORT INFORMATION
  Report Type: 
  Country: None (occurrence: None)
  Receive Date: 20081020
  Receipt Date: 20080926
  Transmission Date: 20090506
  Serious: Yes (Other)
  Sender: FDA-Public Use
  Company Number: CL002202008

PATIENT
  Age: 76 Year
  Sex: 0

DRUGS (1)
  1. CIPROFLOXACIN [Suspect]

REACTIONS (1)
  - TENDON RUPTURE [None]
